FAERS Safety Report 7941128-9 (Version None)
Quarter: 2011Q4

REPORT INFORMATION
  Report Type: 
  Country: None (occurrence: None)
  Receive Date: 20111128
  Receipt Date: 20111116
  Transmission Date: 20120403
  Serious: Yes (Other)
  Sender: FDA-Public Use
  Company Number: US-BAYER-201024108NA

PATIENT
  Age: 21 Year
  Sex: Female
  Weight: 56.236 kg

DRUGS (8)
  1. YASMIN [Suspect]
     Indication: CONTRACEPTION
     Dosage: UNK UNK, QD
     Route: 048
     Dates: start: 20050801, end: 20080501
  2. SINGULAIR [Concomitant]
  3. IMITREX [Concomitant]
  4. TRIAMCINOLONE [Concomitant]
  5. NAPROXEN [Concomitant]
  6. LEXAPRO [Concomitant]
  7. DEXAMETHASONE [Concomitant]
  8. YASMIN [Suspect]
     Indication: PREMENSTRUAL SYNDROME

REACTIONS (5)
  - RETINAL ARTERY EMBOLISM [None]
  - PROTEIN S DEFICIENCY [None]
  - VISION BLURRED [None]
  - RETINAL ARTERY OCCLUSION [None]
  - PAPILLOEDEMA [None]
